FAERS Safety Report 5690342-4 (Version None)
Quarter: 2008Q1

REPORT INFORMATION
  Report Type: 
  Country: None (occurrence: None)
  Receive Date: 20080331
  Receipt Date: 20080331
  Transmission Date: 20080703
  Serious: Yes (Disabling, Other)
  Sender: FDA-Public Use
  Company Number: None

PATIENT
  Age: 4 Year
  Sex: Male
  Weight: 14.0615 kg

DRUGS (2)
  1. SINGULAIR [Suspect]
     Indication: MULTIPLE ALLERGIES
     Dosage: SAMPLE FOR CHILDREN ONCE A DAY PO
     Route: 048
     Dates: start: 20070803, end: 20070823
  2. CLARINEX [Concomitant]

REACTIONS (6)
  - AGGRESSION [None]
  - EXCESSIVE EYE BLINKING [None]
  - FAECAL INCONTINENCE [None]
  - HALLUCINATIONS, MIXED [None]
  - SCHOOL REFUSAL [None]
  - TIC [None]
